FAERS Safety Report 7327146-2 (Version None)
Quarter: 2011Q1

REPORT INFORMATION
  Report Type: 
  Country: None (occurrence: None)
  Receive Date: 20110302
  Receipt Date: 20110228
  Transmission Date: 20110831
  Serious: Yes (Other)
  Sender: FDA-Public Use
  Company Number: US-PFIZER INC-2011043930

PATIENT
  Sex: Female
  Weight: 64.853 kg

DRUGS (1)
  1. AZITHROMYCIN [Suspect]
     Indication: TOOTH INFECTION
     Dosage: 250 MG, 1X/DAY
     Route: 048
     Dates: start: 20110219, end: 20110223

REACTIONS (1)
  - COELIAC DISEASE [None]
